FAERS Safety Report 6518110-1 (Version None)
Quarter: 2009Q4

REPORT INFORMATION
  Report Type: 
  Country: None (occurrence: None)
  Receive Date: 20091218
  Receipt Date: 20091204
  Transmission Date: 20100525
  Serious: Yes (Death)
  Sender: FDA-Public Use
  Company Number: 1000010771

PATIENT
  Age: 29 Year
  Sex: Female

DRUGS (2)
  1. LEXAPRO [Suspect]
  2. VENLAFAXINE [Suspect]
     Dates: start: 20040101

REACTIONS (1)
  - COMPLETED SUICIDE [None]
